FAERS Safety Report 8474827-3 (Version None)
Quarter: 2012Q2

REPORT INFORMATION
  Report Type: 
  Country: None (occurrence: None)
  Receive Date: 20120628
  Receipt Date: 20120621
  Transmission Date: 20120825
  Serious: Yes (Hospitalization, Other)
  Sender: FDA-Public Use
  Company Number: US-TEVA-344952USA

PATIENT
  Sex: Male
  Weight: 2.52 kg

DRUGS (2)
  1. PARAGARD T 380A [Suspect]
     Indication: CONTRACEPTION
     Route: 065
  2. MULTI-VITAMINS [Concomitant]
     Indication: PREGNANCY

REACTIONS (2)
  - JAUNDICE [None]
  - LUNG DISORDER [None]
